FAERS Safety Report 4897511-1 (Version None)
Quarter: 2006Q1

REPORT INFORMATION
  Report Type: 
  Country: None (occurrence: None)
  Receive Date: 20060130
  Receipt Date: 20060130
  Transmission Date: 20060701
  Serious: Yes (Death)
  Sender: FDA-Public Use
  Company Number: None

PATIENT
  Age: 55 Year
  Sex: Male
  Weight: 64.4108 kg

DRUGS (8)
  1. TEQUIN [Suspect]
     Indication: PNEUMONIA
     Dosage: 400MG IV Q24H
     Route: 042
     Dates: start: 20051125, end: 20051126
  2. NOVOLIN INSULIN SLIDING SCALE [Concomitant]
  3. ENOXAPARIN SODIUM [Concomitant]
  4. DOBUTAMINE HCL [Concomitant]
  5. XIGRIS [Concomitant]
  6. DEPACON [Concomitant]
  7. VASOPRESSIN [Concomitant]
  8. CEFEPIME [Concomitant]

REACTIONS (3)
  - BLOOD GLUCOSE DECREASED [None]
  - CARDIAC ARREST [None]
  - CARDIO-RESPIRATORY ARREST [None]
